FAERS Safety Report 21920230 (Version 1)
Quarter: 2023Q1

REPORT INFORMATION
  Report Type: Spontaneous
  Country: CN (occurrence: CN)
  Receive Date: 20230127
  Receipt Date: 20230127
  Transmission Date: 20230417
  Serious: Yes (Other)
  Sender: FDA-Public Use
  Company Number: CN-ASTELLAS-2023US002513

PATIENT
  Sex: Male
  Weight: 2.42 kg

DRUGS (7)
  1. TACROLIMUS [Suspect]
     Active Substance: TACROLIMUS
     Indication: Systemic lupus erythematosus
     Dosage: UNK, UNKNOWN FREQ.
     Route: 064
  2. HYDROXYCHLOROQUINE [Concomitant]
     Active Substance: HYDROXYCHLOROQUINE
     Indication: Systemic lupus erythematosus
     Dosage: UNK UNK, UNKNOWN FREQ.
     Route: 064
  3. PREDNISONE [Concomitant]
     Active Substance: PREDNISONE
     Indication: Systemic lupus erythematosus
     Dosage: UNK UNK, UNKNOWN FREQ.
     Route: 064
  4. CYCLOSPORINE [Concomitant]
     Active Substance: CYCLOSPORINE
     Indication: Systemic lupus erythematosus
     Dosage: UNK UNK, UNKNOWN FREQ.
     Route: 064
  5. ASPIRIN [Concomitant]
     Active Substance: ASPIRIN
     Indication: Systemic lupus erythematosus
     Dosage: UNK UNK, UNKNOWN FREQ.
     Route: 064
  6. ALFACALCIDOL [Concomitant]
     Active Substance: ALFACALCIDOL
     Indication: Systemic lupus erythematosus
     Dosage: UNK UNK, UNKNOWN FREQ.
     Route: 064
  7. BELIMUMAB [Concomitant]
     Active Substance: BELIMUMAB
     Indication: Systemic lupus erythematosus
     Dosage: UNK UNK, MONTHLY
     Route: 064

REACTIONS (2)
  - Low birth weight baby [Unknown]
  - Foetal exposure during pregnancy [Unknown]
